FAERS Safety Report 8760262 (Version 2)
Quarter: 2013Q4

REPORT INFORMATION
  Report Type: Spontaneous
  Country: US (occurrence: US)
  Receive Date: 20120830
  Receipt Date: 20131101
  Transmission Date: 20140711
  Serious: No
  Sender: FDA-Public Use
  Company Number: US-009507513-1208USA009085

PATIENT
  Sex: Female

DRUGS (1)
  1. IMPLANON [Suspect]
     Indication: CONTRACEPTION
     Dosage: 68 MG, 3 YEARS
     Route: 059
     Dates: start: 201011, end: 201104

REACTIONS (3)
  - Menstruation irregular [Recovering/Resolving]
  - Mood swings [Recovered/Resolved]
  - Libido decreased [Not Recovered/Not Resolved]
